FAERS Safety Report 21927955 (Version 1)
Quarter: 2023Q1

REPORT INFORMATION
  Report Type: Spontaneous
  Country: DE (occurrence: DE)
  Receive Date: 20230130
  Receipt Date: 20230130
  Transmission Date: 20230417
  Serious: Yes (Congenital Anomaly)
  Sender: FDA-Public Use
  Company Number: DE-EMBRYOTOX-202104103

PATIENT
  Sex: Male
  Weight: 3.18 kg

DRUGS (5)
  1. SUMATRIPTAN [Suspect]
     Active Substance: SUMATRIPTAN
     Indication: Foetal exposure during pregnancy
     Dosage: (MATERNAL DOSE: UNK (100 [MG/D ]/ 50-100 MG/D, TAKEN AS NEEDED)
     Route: 064
  2. PERTUSSIS VACCINE [Concomitant]
     Active Substance: PERTUSSIS VACCINE
     Indication: Foetal exposure during pregnancy
     Dosage: (MATERNAL DOSE: UNK)
     Route: 064
  3. ASPIRIN [Concomitant]
     Active Substance: ASPIRIN
     Indication: Foetal exposure during pregnancy
     Dosage: (MATERNAL DOSE: UNK)
     Route: 064
     Dates: start: 20210508, end: 20210508
  4. LEVOTHYROXINE SODIUM [Concomitant]
     Active Substance: LEVOTHYROXINE SODIUM
     Indication: Foetal exposure during pregnancy
     Dosage: (MATERNAL DOSE: MO-FR: 125 ?G/D; SAT/SUN: 100 ?G/D)
     Route: 064
     Dates: start: 20210124, end: 20211027
  5. CORTISONE ACETATE [Concomitant]
     Active Substance: CORTISONE ACETATE
     Indication: Foetal exposure during pregnancy
     Dosage: (MATERNAL DOSE: UNK)
     Route: 064
     Dates: start: 20210508, end: 20210508

REACTIONS (2)
  - Cleft lip and palate [Unknown]
  - Foetal exposure during pregnancy [Unknown]
